FAERS Safety Report 4745649-1 (Version None)
Quarter: 2005Q3

REPORT INFORMATION
  Report Type: 
  Country: None (occurrence: None)
  Receive Date: 20050811
  Receipt Date: 20050802
  Transmission Date: 20060218
  Serious: Yes (Death)
  Sender: FDA-Public Use
  Company Number: 2005-05-0006

PATIENT
  Sex: Male

DRUGS (11)
  1. BECLOMETHASONE DIPROPIONATE [Suspect]
  2. FUROSEMIDE [Suspect]
     Dosage: 80MG QAM ORAL
     Route: 048
  3. SPIRIVA [Suspect]
     Dosage: INHALATION
     Route: 055
  4. ALLOPURINOL [Suspect]
     Dosage: 200MG ORAL
     Route: 048
  5. DIGOXIN [Suspect]
     Dosage: 250MG ORAL
     Route: 048
  6. PANTOPRAZOLE [Suspect]
     Dosage: 20MG ORAL
     Route: 048
  7. COVERSYL [Suspect]
     Dosage: 4MG
  8. SIMVASTATIN [Suspect]
     Dosage: 40MG QHS ORAL
     Route: 048
  9. WARFARIN [Suspect]
  10. VENTOLIN [Suspect]
     Dosage: INHALATION
     Route: 055
  11. ACETAMINOPHEN [Suspect]

REACTIONS (1)
  - AORTIC DISSECTION [None]
